FAERS Safety Report 10651772 (Version 1)
Quarter: 2014Q4

REPORT INFORMATION
  Report Type: Spontaneous
  Country: US (occurrence: US)
  Receive Date: 20141215
  Receipt Date: 20141215
  Transmission Date: 20150529
  Serious: Yes (Hospitalization, Other)
  Sender: FDA-Public Use
  Company Number: US-PFIZER INC-2014340373

PATIENT
  Age: 82 Year
  Sex: Female
  Weight: 68 kg

DRUGS (2)
  1. PRILOSEC [Concomitant]
     Active Substance: OMEPRAZOLE MAGNESIUM
     Dosage: UNK
  2. CELEBREX [Suspect]
     Active Substance: CELECOXIB
     Dosage: 20 MG, 1X/DAY
     Route: 048
     Dates: end: 2014

REACTIONS (1)
  - Gastric ulcer [Recovered/Resolved with Sequelae]

NARRATIVE: CASE EVENT DATE: 2014
